FAERS Safety Report 8909170 (Version 1)
Quarter: 2012Q4

REPORT INFORMATION
  Report Type: Spontaneous
  Country: IT (occurrence: None)
  Receive Date: 20121107
  Receipt Date: 20121107
  Transmission Date: 20130627
  Serious: Yes (Hospitalization)
  Sender: FDA-Public Use
  Company Number: VAL_00955_2012

PATIENT
  Age: 37 Year
  Sex: Female

DRUGS (1)
  1. METHERGINE [Suspect]
     Indication: PRODUCT USED FOR UNKNOWN INDICATION
     Dosage: 2 POSOLOGICAL UNITS DAILY ORAL
     Route: 048

REACTIONS (2)
  - Anxiety [None]
  - Palpitations [None]
